FAERS Safety Report 14815610 (Version 1)
Quarter: 2018Q2

REPORT INFORMATION
  Report Type: Spontaneous
  Country: US (occurrence: US)
  Receive Date: 20180417
  Receipt Date: 20180417
  Transmission Date: 20180711
  Serious: No
  Sender: FDA-Public Use
  Company Number: None

PATIENT
  Age: 15 Year
  Sex: Male
  Weight: 58.8 kg

DRUGS (10)
  1. RISPERDAL [Concomitant]
     Active Substance: RISPERIDONE
  2. ACANYA [Concomitant]
     Active Substance: BENZOYL PEROXIDE\CLINDAMYCIN PHOSPHATE
  3. GLYCOPYRROLATE. [Concomitant]
     Active Substance: GLYCOPYRROLATE
  4. MOTRIN [Concomitant]
     Active Substance: IBUPROFEN
  5. SCOPOLAMINE PATCH 1.5MG (1MG/3DAYS) [Suspect]
     Active Substance: SCOPOLAMINE
     Indication: SALIVARY HYPERSECRETION
     Dosage: 1 PATCH EVERY 3 DAYS; TRANSDERMAL?          ?
     Route: 062
     Dates: start: 20150911, end: 20180403
  6. BOTOX [Concomitant]
     Active Substance: ONABOTULINUMTOXINA
  7. DEPAKENE [Concomitant]
     Active Substance: VALPROIC ACID
  8. VIMPAT [Concomitant]
     Active Substance: LACOSAMIDE
  9. ONFI [Concomitant]
     Active Substance: CLOBAZAM
  10. DIASTAT [Concomitant]
     Active Substance: DIAZEPAM

REACTIONS (2)
  - Product substitution issue [None]
  - Product adhesion issue [None]
